FAERS Safety Report 5643818-X (Version None)
Quarter: 2008Q1

REPORT INFORMATION
  Report Type: 
  Country: None (occurrence: None)
  Receive Date: 20080228
  Receipt Date: 20080225
  Transmission Date: 20080703
  Serious: Yes (Hospitalization)
  Sender: FDA-Public Use
  Company Number: US-BRISTOL-MYERS SQUIBB COMPANY-14089437

PATIENT
  Age: 51 Year
  Sex: Male
  Weight: 86 kg

DRUGS (3)
  1. CETUXIMAB [Suspect]
     Indication: TONSIL CANCER
     Route: 042
     Dates: start: 20071126
  2. CISPLATIN [Suspect]
     Indication: TONSIL CANCER
     Route: 042
     Dates: start: 20080121, end: 20080211
  3. RADIOTHERAPY [Suspect]

REACTIONS (2)
  - MUCOSAL INFLAMMATION [None]
  - PYREXIA [None]
